FAERS Safety Report 16160332 (Version 2)
Quarter: 2019Q2

REPORT INFORMATION
  Report Type: Spontaneous
  Country: US (occurrence: US)
  Receive Date: 20190404
  Receipt Date: 20190426
  Transmission Date: 20190711
  Serious: No
  Sender: FDA-Public Use
  Company Number: US-SUNOVION-2019SUN001321

PATIENT
  Age: 74 Year
  Sex: Female
  Weight: 55.33 kg

DRUGS (4)
  1. ASA [Concomitant]
     Active Substance: ASPIRIN
     Dosage: ONCE IN A WHILE
  2. XOPENEX [Suspect]
     Active Substance: LEVALBUTEROL HYDROCHLORIDE
     Dosage: 1 PUFF EVERY 4 HRS
     Route: 055
     Dates: start: 20190331
  3. ALEVE [Concomitant]
     Active Substance: NAPROXEN SODIUM
     Dosage: ONCE IN A WHILE
  4. XOPENEX [Suspect]
     Active Substance: LEVALBUTEROL HYDROCHLORIDE
     Indication: CHRONIC OBSTRUCTIVE PULMONARY DISEASE
     Dosage: 2 PUFFS EVERY 6 HRS/INH
     Route: 055
     Dates: start: 20190328, end: 20190331

REACTIONS (6)
  - Tongue blistering [Recovered/Resolved]
  - Swollen tongue [Recovering/Resolving]
  - Acne [Not Recovered/Not Resolved]
  - Pruritus [Not Recovered/Not Resolved]
  - Pain of skin [Not Recovered/Not Resolved]
  - Rash [Recovering/Resolving]

NARRATIVE: CASE EVENT DATE: 20190328
